FAERS Safety Report 7896218-6 (Version None)
Quarter: 2011Q4

REPORT INFORMATION
  Report Type: 
  Country: None (occurrence: None)
  Receive Date: 20111104
  Receipt Date: 20111104
  Transmission Date: 20120403
  Serious: Yes (Other)
  Sender: FDA-Public Use
  Company Number: None

PATIENT

DRUGS (1)
  1. TI-SILC (NEOVA)  SUN SCREEN SPF-45 [Suspect]
     Indication: SKIN CANCER
     Dates: start: 19990101, end: 20110101

REACTIONS (1)
  - SKIN CANCER [None]
